FAERS Safety Report 10340302 (Version 2)
Quarter: 2014Q3

REPORT INFORMATION
  Report Type: Spontaneous
  Country: US (occurrence: US)
  Receive Date: 20140724
  Receipt Date: 20140724
  Transmission Date: 20150326
  Serious: Yes (Hospitalization)
  Sender: FDA-Public Use
  Company Number: US-009507513-2010SP040537

PATIENT
  Sex: Female
  Weight: 87.9 kg

DRUGS (4)
  1. NUVARING [Suspect]
     Active Substance: ETHINYL ESTRADIOL\ETONOGESTREL
     Dates: start: 20051207, end: 200602
  2. NUVARING [Suspect]
     Active Substance: ETHINYL ESTRADIOL\ETONOGESTREL
     Dates: start: 20080418, end: 20080905
  3. NUVARING [Suspect]
     Active Substance: ETHINYL ESTRADIOL\ETONOGESTREL
     Dates: start: 20070510
  4. NUVARING [Suspect]
     Active Substance: ETHINYL ESTRADIOL\ETONOGESTREL
     Indication: CONTRACEPTION
     Route: 067
     Dates: start: 200505

REACTIONS (38)
  - Deep vein thrombosis [Recovered/Resolved]
  - Breast cyst [Unknown]
  - Foot deformity [Unknown]
  - Blood cholesterol increased [Unknown]
  - Arthralgia [Unknown]
  - Pain in extremity [Unknown]
  - Ear pain [Unknown]
  - Breast mass [Unknown]
  - High risk sexual behaviour [Unknown]
  - Anxiety [Not Recovered/Not Resolved]
  - Urge incontinence [Unknown]
  - Amenorrhoea [Unknown]
  - Bronchitis [Unknown]
  - Hypoaesthesia [Unknown]
  - Headache [Not Recovered/Not Resolved]
  - Dyspnoea exertional [Unknown]
  - Urinary tract infection bacterial [Unknown]
  - Gastritis [Unknown]
  - Paraesthesia [Unknown]
  - Cyst [Unknown]
  - Urinary tract infection [Unknown]
  - Pelvic pain [Unknown]
  - Fatigue [Unknown]
  - Dyspareunia [Unknown]
  - Headache [Unknown]
  - Urethral stenosis [Unknown]
  - Furuncle [Unknown]
  - Sleep disorder [Unknown]
  - Stress [Unknown]
  - Hyperaesthesia [Unknown]
  - Depression [Unknown]
  - Diverticulum [Unknown]
  - Renal cyst [Unknown]
  - Muscle spasms [Unknown]
  - Stress urinary incontinence [Unknown]
  - Menstruation irregular [Unknown]
  - Vena cava filter insertion [Unknown]
  - Menstruation irregular [Unknown]

NARRATIVE: CASE EVENT DATE: 2005
